FAERS Safety Report 11270748 (Version 1)
Quarter: 2015Q3

REPORT INFORMATION
  Report Type: Spontaneous
  Country: US (occurrence: US)
  Receive Date: 20150714
  Receipt Date: 20150714
  Transmission Date: 20151125
  Serious: Yes (Other)
  Sender: FDA-Public Use
  Company Number: US-PFIZER INC-2015227312

PATIENT
  Age: 29 Year
  Sex: Female

DRUGS (7)
  1. CLOZAPINE. [Interacting]
     Active Substance: CLOZAPINE
     Dosage: 200 MG/ DAY
  2. CLOZAPINE. [Interacting]
     Active Substance: CLOZAPINE
     Dosage: 150 MG/ DAY
  3. CLOZAPINE. [Interacting]
     Active Substance: CLOZAPINE
     Dosage: 250 MG/ DAY (GIVEN AS 100 MG EVERY MORNING AND 150 MG AT BEDTIME)
  4. CLOZAPINE. [Interacting]
     Active Substance: CLOZAPINE
     Indication: PSYCHOTIC DISORDER
     Dosage: 50 MG/DAY
  5. CLOZAPINE. [Interacting]
     Active Substance: CLOZAPINE
     Dosage: 150 MG/ DAY
  6. PHENYTOIN. [Suspect]
     Active Substance: PHENYTOIN
     Indication: SEIZURE
     Dosage: 300 MG, EVERY 2 HOURS FOR FOUR DOSES
     Route: 048
  7. CLOZAPINE. [Interacting]
     Active Substance: CLOZAPINE
     Dosage: 100 MG/DAY

REACTIONS (4)
  - Antipsychotic drug level decreased [Unknown]
  - Psychotic disorder [Recovered/Resolved]
  - Condition aggravated [Recovered/Resolved]
  - Drug interaction [Unknown]
